FAERS Safety Report 15642731 (Version 1)
Quarter: 2018Q4

REPORT INFORMATION
  Report Type: Spontaneous
  Country: FI (occurrence: FI)
  Receive Date: 20181121
  Receipt Date: 20181121
  Transmission Date: 20190205
  Serious: Yes (Life-Threatening)
  Sender: FDA-Public Use
  Company Number: FI-ROCHE-2217208

PATIENT
  Age: 65 Year
  Sex: Female

DRUGS (46)
  1. MAREVAN FORTE [Concomitant]
     Active Substance: WARFARIN SODIUM
     Route: 065
  2. DIOVAN [Concomitant]
     Active Substance: VALSARTAN
     Route: 065
  3. ALENDRONAT-RATIOPHARM [Concomitant]
     Route: 065
  4. THYROXIN [Concomitant]
     Active Substance: LEVOTHYROXINE
     Route: 065
  5. OXYNORM [Concomitant]
     Active Substance: OXYCODONE HYDROCHLORIDE
     Route: 065
  6. MABTHERA [Suspect]
     Active Substance: RITUXIMAB
     Indication: RHEUMATOID ARTHRITIS
     Dosage: MOST RECENT DOSE:02/JAN/2018
     Route: 042
     Dates: start: 20140325
  7. SERETIDE [Concomitant]
     Active Substance: FLUTICASONE PROPIONATE\SALMETEROL XINAFOATE
     Route: 065
  8. PULMICORT TURBUHALER [Concomitant]
     Active Substance: BUDESONIDE
     Route: 065
  9. FURESIS COMP [Concomitant]
     Active Substance: FUROSEMIDE\TRIAMTERENE
     Route: 065
  10. CARDACE (FINLAND) [Concomitant]
     Route: 065
  11. OXIS TURBOHALER [Concomitant]
     Route: 065
  12. DINIT (FINLAND) [Concomitant]
     Route: 065
  13. COLGATE DURAPHAT [Concomitant]
     Active Substance: SODIUM FLUORIDE
     Route: 065
  14. NORSPAN (FINLAND) [Concomitant]
     Route: 065
  15. BISOPROLOL-RATIOPHARM [Concomitant]
     Route: 065
  16. ZOMIG [Concomitant]
     Active Substance: ZOLMITRIPTAN
     Route: 065
  17. STRIVERDI RESPIMAT [Concomitant]
     Active Substance: OLODATEROL HYDROCHLORIDE
     Route: 065
  18. SOMAC [Concomitant]
     Active Substance: PANTOPRAZOLE SODIUM
     Route: 065
  19. SPIRIVA RESPIMAT [Concomitant]
     Active Substance: TIOTROPIUM BROMIDE
     Route: 065
  20. ALVESCO [Concomitant]
     Active Substance: CICLESONIDE
     Route: 065
  21. FUCIDIN [Concomitant]
     Active Substance: FUSIDATE SODIUM
     Route: 065
  22. PREDNISOLON [Concomitant]
     Active Substance: PREDNISOLONE
     Route: 065
  23. PROLIA [Concomitant]
     Active Substance: DENOSUMAB
     Route: 065
  24. PANADOL FORTE [Concomitant]
     Route: 065
  25. VENTOLINE [Concomitant]
     Active Substance: ALBUTEROL
     Route: 065
  26. IPRAMOL [Concomitant]
     Active Substance: ALBUTEROL SULFATE\IPRATROPIUM BROMIDE
     Route: 065
  27. ZOMIG [Concomitant]
     Active Substance: ZOLMITRIPTAN
     Route: 065
  28. INSPIOLTO RESPIMAT [Concomitant]
     Active Substance: OLODATEROL HYDROCHLORIDE\TIOTROPIUM BROMIDE MONOHYDRATE
     Route: 065
  29. NASONEX [Concomitant]
     Active Substance: MOMETASONE FUROATE
     Route: 065
  30. LYRICA [Concomitant]
     Active Substance: PREGABALIN
     Route: 065
  31. CETIRIZIN RATIOPHARM [Concomitant]
     Route: 065
  32. SIMVASTATIN ORION [Concomitant]
     Active Substance: SIMVASTATIN
     Route: 065
  33. PANACOD [Concomitant]
     Active Substance: ACETAMINOPHEN\CODEINE PHOSPHATE
     Route: 065
  34. OXYCONTIN [Concomitant]
     Active Substance: OXYCODONE HYDROCHLORIDE
     Route: 065
  35. ATRODUAL [Concomitant]
     Route: 065
  36. ATORVASTATIN [Concomitant]
     Active Substance: ATORVASTATIN
     Route: 065
  37. AZAMUN [Concomitant]
     Active Substance: AZATHIOPRINE
     Route: 065
  38. PRIMPERAN [Concomitant]
     Active Substance: METOCLOPRAMIDE HYDROCHLORIDE
     Route: 065
  39. KLEXANE [Concomitant]
     Active Substance: ENOXAPARIN
     Route: 065
  40. KALCIPOS-D [Concomitant]
     Active Substance: CALCIUM CARBONATE\CHOLECALCIFEROL
     Route: 065
  41. MUCOMYST [Concomitant]
     Active Substance: ACETYLCYSTEINE
     Route: 065
  42. ROSUVASTATIN. [Concomitant]
     Active Substance: ROSUVASTATIN
     Route: 065
  43. FLAVAMED (FINLAND) [Concomitant]
     Route: 065
  44. AMLODIPIN [Concomitant]
     Active Substance: AMLODIPINE BESYLATE
     Route: 065
  45. AVITCID [Concomitant]
     Route: 065
  46. OXANEST [Concomitant]
     Active Substance: OXYCODONE HYDROCHLORIDE
     Route: 065

REACTIONS (6)
  - Vomiting [Unknown]
  - Nausea [Unknown]
  - Herpes zoster [Unknown]
  - Gastroenteritis [Unknown]
  - Nasal herpes [Unknown]
  - Progressive multifocal leukoencephalopathy [Unknown]
